FAERS Safety Report 8115393-1 (Version None)
Quarter: 2012Q1

REPORT INFORMATION
  Report Type: 
  Country: None (occurrence: None)
  Receive Date: 20120206
  Receipt Date: 20120206
  Transmission Date: 20120608
  Serious: No
  Sender: FDA-Public Use
  Company Number: None

PATIENT
  Age: 52 Year
  Sex: Male
  Weight: 92.532 kg

DRUGS (1)
  1. PROPECIA [Suspect]
     Indication: ALOPECIA
     Dosage: 1.0 MG
     Route: 048
     Dates: start: 20040305, end: 20110415

REACTIONS (11)
  - IRRITABILITY [None]
  - SEXUAL DYSFUNCTION [None]
  - AMNESIA [None]
  - MENTAL DISORDER [None]
  - DEPRESSION [None]
  - ANXIETY [None]
  - INITIAL INSOMNIA [None]
  - AFFECTIVE DISORDER [None]
  - LIBIDO DECREASED [None]
  - APATHY [None]
  - ERECTILE DYSFUNCTION [None]
